FAERS Safety Report 4339433-0 (Version None)
Quarter: 2004Q2

REPORT INFORMATION
  Report Type: 
  Country: None (occurrence: None)
  Receive Date: 20040415
  Receipt Date: 20040408
  Transmission Date: 20050107
  Serious: Yes (Hospitalization)
  Sender: FDA-Public Use
  Company Number: US-GLAXOSMITHKLINE-A0506348A

PATIENT
  Age: 71 Year
  Sex: Female

DRUGS (2)
  1. MELPHALAN [Suspect]
     Indication: MULTIPLE MYELOMA
     Route: 042
     Dates: start: 20040304
  2. THALIDOMIDE [Suspect]
     Indication: MULTIPLE MYELOMA
     Route: 048
     Dates: start: 20030616, end: 20031208

REACTIONS (5)
  - BACTERIAL INFECTION [None]
  - CENTRAL LINE INFECTION [None]
  - PYREXIA [None]
  - SINUSITIS [None]
  - THROMBOCYTOPENIA [None]
